FAERS Safety Report 4786825-1 (Version None)
Quarter: 2005Q3

REPORT INFORMATION
  Report Type: 
  Country: None (occurrence: None)
  Receive Date: 20050930
  Receipt Date: 20050920
  Transmission Date: 20060218
  Serious: Yes (Other)
  Sender: FDA-Public Use
  Company Number: WAES 0509USA03150

PATIENT

DRUGS (2)
  1. DECADRON [Suspect]
  2. INJ EDOTECARIN [Suspect]

REACTIONS (3)
  - BRAIN OEDEMA [None]
  - DYSARTHRIA [None]
  - LETHARGY [None]
